FAERS Safety Report 10920955 (Version 1)
Quarter: 2015Q1

REPORT INFORMATION
  Report Type: Spontaneous
  Country: GB (occurrence: GB)
  Receive Date: 20150317
  Receipt Date: 20150317
  Transmission Date: 20150721
  Serious: Yes (Other)
  Sender: FDA-Public Use
  Company Number: GB-TEVA-547127ACC

PATIENT
  Age: 72 Year
  Sex: Female
  Weight: 75 kg

DRUGS (16)
  1. ATORVASTATIN [Concomitant]
     Active Substance: ATORVASTATIN
     Dosage: 1 DOSAGE FORMS DAILY; AT NIGHT; DAILY DOSE: 1 DOSAGE FORMS
     Dates: start: 20140707
  2. SUMATRIPTAN. [Concomitant]
     Active Substance: SUMATRIPTAN
     Dosage: TAKE WHEN ATTACK STARTING
     Dates: start: 20081121
  3. FELODIPINE. [Concomitant]
     Active Substance: FELODIPINE
     Dosage: 1 DOSAGE FORMS DAILY;
     Dates: start: 20140707
  4. NORTRIPTYLINE [Concomitant]
     Active Substance: NORTRIPTYLINE
     Dosage: 1 DOSAGE FORMS DAILY; ONE AT NIGHT; DAILY DOSE: 1 DOSAGE FORMS
     Dates: start: 20150223
  5. PREGABALIN. [Concomitant]
     Active Substance: PREGABALIN
     Dosage: 1 DOSAGE FORMS DAILY; AT NIGHT; DAILY DOSE: 1 DOSAGE FORMS
     Dates: start: 20140728, end: 20150223
  6. PARACETAMOL [Concomitant]
     Active Substance: ACETAMINOPHEN
     Dosage: TAKE 1 OR 2 TABLETS EVERY 4 TO 6 HOURS
     Dates: start: 20141212, end: 20150217
  7. COCODAMOL [Concomitant]
     Active Substance: ACETAMINOPHEN\CODEINE PHOSPHATE
     Dosage: TAKE 1 OR 2 TO BE TAKEN 4 TIMES DAILY
     Dates: start: 20150206, end: 20150207
  8. INTAL [Concomitant]
     Active Substance: CROMOLYN SODIUM
     Dosage: 4 DOSAGE FORMS DAILY;
     Dates: start: 20150107, end: 20150108
  9. LIDOCAINE. [Suspect]
     Active Substance: LIDOCAINE
     Dates: start: 20150224
  10. SYSTANE (HYPROMELLOSE 2910 (4000 MPA.S)) [Concomitant]
     Active Substance: HYPROMELLOSE 2910 (4000 MPA.S)
     Dosage: USE AS DIRECTED
     Dates: start: 20141201, end: 20150101
  11. ATENOLOL. [Concomitant]
     Active Substance: ATENOLOL
     Dosage: 1 DOSAGE FORMS DAILY; IN THE MORNING; DAILY DOSE: 1 DOSAGE FORMS
     Dates: start: 20130617
  12. FUSIDIC ACID [Concomitant]
     Active Substance: FUSIDIC ACID
     Dosage: 2 DOSAGE FORMS DAILY;
     Dates: start: 20141231, end: 20150105
  13. LACTULOSE. [Concomitant]
     Active Substance: LACTULOSE
     Dosage: 10 ML DAILY;
     Dates: start: 20141208, end: 20150131
  14. CHLORAMPHENICOL [Concomitant]
     Active Substance: CHLORAMPHENICOL
     Dosage: APPLY TO THE LOWER INSIDE EYELID OF THE AFFECTED EYE
     Dates: start: 20141219, end: 20141224
  15. CODEINE PHOSPHATE [Concomitant]
     Active Substance: CODEINE PHOSPHATE
     Dosage: TAKE 1 OR 2 TABLET(S) UP TO 4 TIMES A DAY
     Dates: start: 20141208, end: 20150210
  16. PANTOPRAZOLE [Concomitant]
     Active Substance: PANTOPRAZOLE SODIUM
     Dosage: 1 DOSAGE FORMS DAILY; ONCE A DAY, CAN BE INCREASED TO TWICE DAILY; DAILY DOSE: 1 DOSAGE FORMS
     Dates: start: 20131212

REACTIONS (2)
  - Vomiting [Recovered/Resolved]
  - Nausea [Recovered/Resolved]

NARRATIVE: CASE EVENT DATE: 20150302
